FAERS Safety Report 14056032 (Version 4)
Quarter: 2017Q4

REPORT INFORMATION
  Report Type: Report from Study
  Country: None (occurrence: DE)
  Receive Date: 20171006
  Receipt Date: 20171122
  Transmission Date: 20180321
  Serious: Yes (Hospitalization)
  Sender: FDA-Public Use
  Company Number: DE-ABBVIE-17K-062-2118118-00

PATIENT
  Age: 57 Year
  Sex: Male

DRUGS (2)
  1. DUODOPA [Suspect]
     Active Substance: CARBIDOPA\LEVODOPA
     Indication: PARKINSON^S DISEASE
     Dosage: MD: 8 ML, CRD: 1.8 ML/H, ED: 2ML
     Route: 050
     Dates: start: 20140320
  2. DUODOPA [Suspect]
     Active Substance: CARBIDOPA\LEVODOPA
     Dosage: MD: 8 ML, CRD: 1.8 ML/H, CRN: 1.3ML/H, ED: 2 ML,
     Route: 050

REACTIONS (7)
  - Mobility decreased [Unknown]
  - Aggression [Not Recovered/Not Resolved]
  - Parkinson^s disease [Not Recovered/Not Resolved]
  - Device kink [Unknown]
  - On and off phenomenon [Unknown]
  - Stoma site discharge [Unknown]
  - Stoma site inflammation [Unknown]

NARRATIVE: CASE EVENT DATE: 201711
